FAERS Safety Report 8612829-4 (Version None)
Quarter: 2012Q3

REPORT INFORMATION
  Report Type: 
  Country: None (occurrence: None)
  Receive Date: 20120822
  Receipt Date: 20111202
  Transmission Date: 20120928
  Serious: No
  Sender: FDA-Public Use
  Company Number: US-ASTRAZENECA-2011SE01986

PATIENT
  Age: 58 Year
  Sex: Female

DRUGS (2)
  1. NEXIUM [Suspect]
     Dosage: 1-2 EVERY MORNING
     Route: 048
  2. SYMBICORT [Suspect]
     Dosage: 160/4.5 TWO PUFFS TWO TIMES A DAY
     Route: 055

REACTIONS (4)
  - ASTHMA [None]
  - ALOPECIA [None]
  - SINUSITIS [None]
  - PARANOIA [None]
